FAERS Safety Report 8068433-2 (Version None)
Quarter: 2012Q1

REPORT INFORMATION
  Report Type: 
  Country: None (occurrence: None)
  Receive Date: 20120124
  Receipt Date: 20111024
  Transmission Date: 20120608
  Serious: No
  Sender: FDA-Public Use
  Company Number: US-AMGEN-USASP2011054846

PATIENT
  Age: 69 Year
  Sex: Female

DRUGS (9)
  1. FOLIC ACID [Concomitant]
     Dosage: 1 MG, QD
  2. BALSALAZIDE DISODIUM [Concomitant]
     Indication: COLITIS
     Dosage: 750 MG, QD
  3. MAGNESIUM SULFATE [Concomitant]
     Dosage: UNK, QD
  4. PROLIA [Suspect]
     Indication: OSTEOPOROSIS POSTMENOPAUSAL
     Dosage: 60 MG, Q6MO
     Dates: start: 20110926
  5. PRAVASTATIN [Concomitant]
     Dosage: 1 MG, QD
  6. MULTI-VITAMIN [Concomitant]
     Dosage: UNK UNK, QD
  7. CALCIUM WITH VITAMIN D [Concomitant]
     Dosage: UNK UNK, QD
  8. LEVOTHYROXINE SODIUM [Concomitant]
     Dosage: UNK
  9. PLAVIX [Concomitant]
     Dosage: UNK UNK, QD

REACTIONS (2)
  - ARTHRALGIA [None]
  - GLOMERULAR FILTRATION RATE [None]
